FAERS Safety Report 6543219-6 (Version None)
Quarter: 2010Q1

REPORT INFORMATION
  Report Type: 
  Country: None (occurrence: None)
  Receive Date: 20100120
  Receipt Date: 20100108
  Transmission Date: 20100710
  Serious: Yes (Other)
  Sender: FDA-Public Use
  Company Number: US-ELI_LILLY_AND_COMPANY-US201001001676

PATIENT
  Sex: Female

DRUGS (5)
  1. FORTEO [Suspect]
     Indication: OSTEOPOROSIS
     Dosage: 20 UG, DAILY (1/D)
     Dates: start: 20091101
  2. VITAMIN B-12 [Concomitant]
  3. VITAMIN D3 [Concomitant]
  4. IBUPROFEN [Concomitant]
     Dosage: 600 MG, UNK
  5. XANAX [Concomitant]

REACTIONS (1)
  - BREAST CANCER [None]
